FAERS Safety Report 22680617 (Version 6)
Quarter: 2024Q1

REPORT INFORMATION
  Report Type: Report from Study
  Country: US (occurrence: US)
  Receive Date: 20230707
  Receipt Date: 20240215
  Transmission Date: 20240410
  Serious: No
  Sender: FDA-Public Use
  Company Number: US-ACADIA PHARMACEUTICALS INC.-ACA-2023-TRF-002398

PATIENT
  Age: 13 Year
  Sex: Female

DRUGS (13)
  1. DAYBUE [Suspect]
     Active Substance: TROFINETIDE
     Indication: Rett syndrome
     Dosage: 50 MILLILITER, BID
     Route: 048
     Dates: start: 20230614
  2. DAYBUE [Suspect]
     Active Substance: TROFINETIDE
     Dosage: 50 ML MORNING AND 45 ML NIGHT
     Route: 048
  3. DAYBUE [Suspect]
     Active Substance: TROFINETIDE
     Dosage: 45 MILLILITER, BID
     Route: 048
  4. DAYBUE [Suspect]
     Active Substance: TROFINETIDE
     Dosage: 50 MILLILITER, BID
     Route: 048
  5. DAYBUE [Suspect]
     Active Substance: TROFINETIDE
     Dosage: 45 MILLILITER, BID
     Route: 048
  6. DAYBUE [Suspect]
     Active Substance: TROFINETIDE
     Dosage: 50 MILLILITER, BID
     Route: 048
     Dates: end: 20240111
  7. ROBINUL [Concomitant]
     Active Substance: GLYCOPYRROLATE
     Dosage: 1 MILLIGRAM
     Route: 048
  8. CRANBERRY [Concomitant]
     Active Substance: CRANBERRY
     Dosage: 200 MILLIGRAM
     Route: 048
  9. SIMETHICONE (DIMETHICONE) [Concomitant]
     Active Substance: DIMETHICONE
     Dosage: EXTRA STRENGTH
     Route: 048
  10. ERYTHROMYCIN ETHYLSUCCINATE [Concomitant]
     Active Substance: ERYTHROMYCIN ETHYLSUCCINATE
     Route: 048
  11. FAMOTIDINE [Concomitant]
     Active Substance: FAMOTIDINE
     Dosage: 20 MILLIGRAM
     Route: 048
  12. VIMPAT [Concomitant]
     Active Substance: LACOSAMIDE
     Dosage: 10 MG/ML
     Route: 048
  13. CALCIUM CARBONATE\SODIUM ALGINATE [Concomitant]
     Active Substance: CALCIUM CARBONATE\SODIUM ALGINATE
     Dosage: 95-358 MG
     Route: 048

REACTIONS (13)
  - Drug ineffective [Unknown]
  - Productive cough [Not Recovered/Not Resolved]
  - Prescribed underdose [Unknown]
  - Drug ineffective [Unknown]
  - Abdominal discomfort [Unknown]
  - Gastrooesophageal reflux disease [Unknown]
  - Vomiting [Recovered/Resolved]
  - Vomiting [Unknown]
  - Diarrhoea [Unknown]
  - Diarrhoea [Not Recovered/Not Resolved]
  - Vomiting [Not Recovered/Not Resolved]
  - Diarrhoea [Not Recovered/Not Resolved]
  - Nasopharyngitis [Not Recovered/Not Resolved]

NARRATIVE: CASE EVENT DATE: 20230614
